FAERS Safety Report 23516933 (Version 1)
Quarter: 2024Q1

REPORT INFORMATION
  Report Type: Spontaneous
  Country: US (occurrence: None)
  Receive Date: 20240212
  Receipt Date: 20240212
  Transmission Date: 20240410
  Serious: Yes (Hospitalization, Disabling)
  Sender: FDA-Public Use
  Company Number: None

PATIENT
  Age: 29 Year
  Sex: Female
  Weight: 47.25 kg

DRUGS (1)
  1. CIPROFLOXACIN [Suspect]
     Active Substance: CIPROFLOXACIN
     Indication: Bronchitis chronic
     Route: 048
     Dates: start: 20180605, end: 20181030

REACTIONS (6)
  - Myalgia [None]
  - Asthenia [None]
  - Seizure [None]
  - Migraine with aura [None]
  - Gait disturbance [None]
  - Impaired driving ability [None]

NARRATIVE: CASE EVENT DATE: 20181031
